FAERS Safety Report 7715616-4 (Version None)
Quarter: 2011Q3

REPORT INFORMATION
  Report Type: 
  Country: None (occurrence: None)
  Receive Date: 20110829
  Receipt Date: 20110812
  Transmission Date: 20111222
  Serious: Yes (Other)
  Sender: FDA-Public Use
  Company Number: DE-ROCHE-797911

PATIENT
  Age: 67 Year
  Sex: Female
  Weight: 58 kg

DRUGS (1)
  1. IBANDRONATE SODIUM [Suspect]
     Route: 042
     Dates: start: 20101008, end: 20101008

REACTIONS (1)
  - ARRHYTHMIA [None]
